FAERS Safety Report 8925931 (Version 1)
Quarter: 2012Q4

REPORT INFORMATION
  Report Type: 
  Country: JP (occurrence: JP)
  Receive Date: 20121126
  Receipt Date: 20121126
  Transmission Date: 20130627
  Serious: Yes (Hospitalization, Other)
  Sender: FDA-Public Use
  Company Number: JP-BAYER-2012-105466

PATIENT
  Age: 57 Year
  Sex: Male
  Weight: 66 kg

DRUGS (2)
  1. BAYER ASPIRIN [Suspect]
     Indication: ANTIPLATELET THERAPY
     Dosage: 200 mg, QD
     Route: 048
     Dates: start: 20100713
  2. PLAVIX [Interacting]
     Indication: ANTIPLATELET THERAPY
     Dosage: 75 mg, QD
     Route: 048
     Dates: start: 20100713

REACTIONS (5)
  - Melaena [Recovered/Resolved]
  - Haemorrhagic anaemia [Recovered/Resolved]
  - Gastrointestinal angiodysplasia haemorrhagic [Recovered/Resolved]
  - Gastrointestinal angiodysplasia [Recovered/Resolved]
  - Drug interaction [None]
